FAERS Safety Report 7492540-6 (Version None)
Quarter: 2011Q2

REPORT INFORMATION
  Report Type: 
  Country: None (occurrence: None)
  Receive Date: 20110519
  Receipt Date: 20110518
  Transmission Date: 20111010
  Serious: Yes (Other)
  Sender: FDA-Public Use
  Company Number: US-PFIZER INC-2011062950

PATIENT
  Sex: Female
  Weight: 83 kg

DRUGS (3)
  1. CHANTIX [Suspect]
     Indication: SMOKING CESSATION THERAPY
     Dosage: 0.5 MG, 1X/DAY
     Route: 048
     Dates: start: 20110318, end: 20110301
  2. CHANTIX [Suspect]
     Dosage: 0.5 MG, 2X/DAY
     Dates: start: 20110301
  3. CHANTIX [Suspect]
     Dosage: UNK
     Dates: start: 20110101

REACTIONS (5)
  - PAIN [None]
  - NERVOUS SYSTEM DISORDER [None]
  - GAIT DISTURBANCE [None]
  - DYSPNOEA [None]
  - HALLUCINATION [None]
